FAERS Safety Report 20515048 (Version 2)
Quarter: 2022Q1

REPORT INFORMATION
  Report Type: Report from Study
  Country: US (occurrence: US)
  Receive Date: 20220224
  Receipt Date: 20220330
  Transmission Date: 20220424
  Serious: Yes (Other)
  Sender: FDA-Public Use
  Company Number: US-JAZZ-2022-US-003401

PATIENT
  Sex: Female

DRUGS (2)
  1. SUNOSI [Suspect]
     Active Substance: SOLRIAMFETOL
     Indication: Product used for unknown indication
     Dosage: UNK
  2. XYWAV [Suspect]
     Active Substance: CALCIUM OXYBATE\MAGNESIUM OXYBATE\POTASSIUM OXYBATE\SODIUM OXYBATE
     Indication: Product used for unknown indication
     Dosage: DRUG NOT ADMINISTERED

REACTIONS (6)
  - Surgery [Unknown]
  - Multiple sclerosis [Unknown]
  - Arthritis [Unknown]
  - Musculoskeletal discomfort [Unknown]
  - COVID-19 [Unknown]
  - Hypersensitivity [Not Recovered/Not Resolved]
